FAERS Safety Report 4385181-0 (Version None)
Quarter: 2004Q2

REPORT INFORMATION
  Report Type: 
  Country: None (occurrence: None)
  Receive Date: 20040607
  Receipt Date: 20031119
  Transmission Date: 20050107
  Serious: Yes (Other)
  Sender: FDA-Public Use
  Company Number: 352147

PATIENT

DRUGS (1)
  1. ISOTRETINOIN [Suspect]
     Indication: ACNE
     Dosage: 20 MG 1 PER 2 DAY ORAL
     Route: 048
     Dates: start: 20030715, end: 20031118

REACTIONS (3)
  - ADVERSE EVENT [None]
  - NO ADVERSE EFFECT [None]
  - PREGNANCY [None]
